FAERS Safety Report 14288832 (Version 3)
Quarter: 2018Q1

REPORT INFORMATION
  Report Type: Spontaneous
  Country: DE (occurrence: DE)
  Receive Date: 20171214
  Receipt Date: 20180117
  Transmission Date: 20180509
  Serious: Yes (Other)
  Sender: FDA-Public Use
  Company Number: DE-MYLANLABS-2017M1078170

PATIENT
  Age: 68 Year
  Sex: Female

DRUGS (1)
  1. IMATINIB [Suspect]
     Active Substance: IMATINIB
     Indication: CHRONIC MYELOID LEUKAEMIA
     Dosage: UNK

REACTIONS (5)
  - Drug effect decreased [Recovering/Resolving]
  - Oedema peripheral [Unknown]
  - Nausea [Unknown]
  - Weight decreased [Unknown]
  - Electrocardiogram QT prolonged [Recovered/Resolved]
